FAERS Safety Report 13953642 (Version 3)
Quarter: 2018Q2

REPORT INFORMATION
  Report Type: Report from Study
  Country: JP (occurrence: JP)
  Receive Date: 20170911
  Receipt Date: 20180412
  Transmission Date: 20180711
  Serious: Yes (Other)
  Sender: FDA-Public Use
  Company Number: JP-ROCHE-1990619

PATIENT
  Age: 8 Year
  Sex: Male
  Weight: 22 kg

DRUGS (4)
  1. TOCILIZUMAB. [Suspect]
     Active Substance: TOCILIZUMAB
     Indication: KAWASAKI^S DISEASE
     Dosage: 200 MG DAY 1
     Route: 041
     Dates: start: 20071112, end: 20071112
  2. IMMUNE GLOBULIN [Concomitant]
     Active Substance: HUMAN IMMUNOGLOBULIN G
     Route: 042
     Dates: start: 20071109, end: 20071110
  3. ASPIRIN. [Concomitant]
     Active Substance: ASPIRIN
     Route: 065
     Dates: start: 20071111
  4. FROBEN [Concomitant]
     Active Substance: FLURBIPROFEN
     Route: 065
     Dates: start: 20071109, end: 20071110

REACTIONS (1)
  - Coronary artery aneurysm [Not Recovered/Not Resolved]

NARRATIVE: CASE EVENT DATE: 20071115
